FAERS Safety Report 17840332 (Version 1)
Quarter: 2020Q2

REPORT INFORMATION
  Report Type: Spontaneous
  Country: US (occurrence: US)
  Receive Date: 20200529
  Receipt Date: 20200529
  Transmission Date: 20200714
  Serious: No
  Sender: FDA-Public Use
  Company Number: US-INDIVIOR US-INDV-123608-2020

PATIENT
  Age: 53 Year
  Sex: Female

DRUGS (2)
  1. PERSERIS [Suspect]
     Active Substance: RISPERIDONE
     Indication: SCHIZOPHRENIA
     Dosage: 90 MILLIGRAM, QMO
     Route: 058
     Dates: start: 20200107
  2. PERSERIS [Suspect]
     Active Substance: RISPERIDONE
     Dosage: 90 MILLIGRAM
     Route: 058
     Dates: start: 20200206

REACTIONS (7)
  - Injection site rash [Recovered/Resolved]
  - Injection site erythema [Recovered/Resolved]
  - Injection site pain [Recovered/Resolved]
  - Injection site swelling [Recovered/Resolved]
  - Injection site bruising [Unknown]
  - Injection site warmth [Recovered/Resolved]
  - Injection site pruritus [Recovered/Resolved]

NARRATIVE: CASE EVENT DATE: 202001
